FAERS Safety Report 6533618-0 (Version None)
Quarter: 2010Q1

REPORT INFORMATION
  Report Type: 
  Country: None (occurrence: None)
  Receive Date: 20100108
  Receipt Date: 20100108
  Transmission Date: 20100710
  Serious: No
  Sender: FDA-Public Use
  Company Number: None

PATIENT
  Age: 39 Year
  Sex: Female
  Weight: 54.4316 kg

DRUGS (1)
  1. AVELOX [Suspect]
     Indication: URINARY TRACT INFECTION
     Dosage: 400MG 1XPER DAY PO
     Route: 048
     Dates: start: 20100104, end: 20100107

REACTIONS (1)
  - TENDONITIS [None]
